FAERS Safety Report 5812758-5 (Version None)
Quarter: 2008Q3

REPORT INFORMATION
  Report Type: 
  Country: None (occurrence: None)
  Receive Date: 20080714
  Receipt Date: 20080630
  Transmission Date: 20090109
  Serious: Yes (Hospitalization)
  Sender: FDA-Public Use
  Company Number: DSU-2008-00988

PATIENT
  Sex: Male

DRUGS (1)
  1. BENICAR HCT [Suspect]
     Indication: DRUG USE FOR UNKNOWN INDICATION
     Dosage: 40/25 MG (QD), PER ORAL
     Route: 048

REACTIONS (1)
  - DEHYDRATION [None]
